FAERS Safety Report 4631886-3 (Version None)
Quarter: 2005Q2

REPORT INFORMATION
  Report Type: 
  Country: None (occurrence: None)
  Receive Date: 20050411
  Receipt Date: 20050404
  Transmission Date: 20051028
  Serious: Yes (Death)
  Sender: FDA-Public Use
  Company Number: US-BRISTOL-MYERS SQUIBB COMPANY-12922845

PATIENT
  Age: 47 Year
  Sex: Male

DRUGS (2)
  1. SERZONE [Suspect]
     Indication: DEPRESSION
     Route: 048
     Dates: start: 20011113, end: 20020101
  2. SERZONE [Suspect]
     Indication: ANXIETY
     Route: 048
     Dates: start: 20011113, end: 20020101

REACTIONS (2)
  - DROWNING [None]
  - FALL [None]
